FAERS Safety Report 25791514 (Version 1)
Quarter: 2025Q3

REPORT INFORMATION
  Report Type: Spontaneous
  Country: CA (occurrence: CA)
  Receive Date: 20250911
  Receipt Date: 20250911
  Transmission Date: 20251020
  Serious: Yes (Other)
  Sender: AMERICAN REGENT
  Company Number: CA-AMERICAN REGENT INC-2025003112

PATIENT
  Age: 22 Year
  Sex: Female

DRUGS (2)
  1. VENOFER [Suspect]
     Active Substance: IRON SUCROSE
     Indication: Iron deficiency anaemia
     Route: 065
  2. VENOFER [Suspect]
     Active Substance: IRON SUCROSE
     Dates: start: 20250222, end: 20250222

REACTIONS (4)
  - Urticaria [Unknown]
  - Maternal exposure during pregnancy [Unknown]
  - Swelling face [Unknown]
  - Incorrect product administration duration [Unknown]

NARRATIVE: CASE EVENT DATE: 20250222
